FAERS Safety Report 21200667 (Version 1)
Quarter: 2022Q3

REPORT INFORMATION
  Report Type: Spontaneous
  Country: GB (occurrence: GB)
  Receive Date: 20220811
  Receipt Date: 20220811
  Transmission Date: 20221027
  Serious: Yes (Death, Other)
  Sender: FDA-Public Use
  Company Number: GB-ARISTO PHARMA-TENO202006092-L2A-2006GBR000756

PATIENT
  Age: 57 Year
  Sex: Male

DRUGS (48)
  1. NORVIR [Suspect]
     Active Substance: RITONAVIR
     Indication: Product used for unknown indication
     Dosage: 100 MILLIGRAM, ONCE A DAY
     Route: 048
  2. NORVIR [Suspect]
     Active Substance: RITONAVIR
     Dosage: 100 MILLIGRAM, ONCE A DAY
     Route: 048
  3. NORVIR [Suspect]
     Active Substance: RITONAVIR
     Dosage: 100 MILLIGRAM, BID
     Route: 048
  4. NORVIR [Suspect]
     Active Substance: RITONAVIR
     Dosage: 100 MILLIGRAM, 2/DAY
     Route: 048
  5. NORVIR [Suspect]
     Active Substance: RITONAVIR
     Dosage: 100 MILLIGRAM, ONCE A DAY
     Route: 048
  6. NORVIR [Suspect]
     Active Substance: RITONAVIR
     Dosage: 100 MILLIGRAM, BID
     Route: 048
  7. NORVIR [Suspect]
     Active Substance: RITONAVIR
     Dosage: 100 MILLIGRAM, BID
     Route: 048
  8. NORVIR [Suspect]
     Active Substance: RITONAVIR
     Dosage: 100 MILLIGRAM, ONCE A DAY
     Route: 048
  9. NORVIR [Suspect]
     Active Substance: RITONAVIR
     Dosage: 200 MILLIGRAM, ONCE A DAY (100 MILLIGRAM, BID)
     Route: 048
  10. ACYCLOVIR [Suspect]
     Active Substance: ACYCLOVIR
     Indication: Product used for unknown indication
     Dosage: 400 MG
     Route: 065
  11. ACYCLOVIR [Suspect]
     Active Substance: ACYCLOVIR
     Dosage: 400 MG
     Route: 065
  12. ACYCLOVIR [Suspect]
     Active Substance: ACYCLOVIR
     Dosage: 400MG, BID
     Route: 065
  13. ACYCLOVIR [Suspect]
     Active Substance: ACYCLOVIR
     Dosage: 400 MG
     Route: 065
  14. ACYCLOVIR [Suspect]
     Active Substance: ACYCLOVIR
     Dosage: 400 MG, QD
     Route: 065
  15. DARUNAVIR [Suspect]
     Active Substance: DARUNAVIR
     Indication: Product used for unknown indication
     Dosage: 600 MG, 1/DAY
     Route: 065
  16. DARUNAVIR [Suspect]
     Active Substance: DARUNAVIR
     Dosage: 600 MILLIGRAM, QD
     Route: 065
  17. DARUNAVIR [Suspect]
     Active Substance: DARUNAVIR
     Dosage: UNK, 2/DAY
     Route: 065
  18. DARUNAVIR [Suspect]
     Active Substance: DARUNAVIR
     Dosage: 600 MG, 1/DAY
     Route: 065
  19. DARUNAVIR [Suspect]
     Active Substance: DARUNAVIR
     Dosage: 600 MG, BID
     Route: 065
  20. DARUNAVIR [Suspect]
     Active Substance: DARUNAVIR
     Dosage: UNK, 1/DAY
     Route: 065
  21. DARUNAVIR [Suspect]
     Active Substance: DARUNAVIR
     Dosage: 600 MG, 1/DAY
     Route: 065
  22. DARUNAVIR [Suspect]
     Active Substance: DARUNAVIR
     Dosage: 400 MILLIGRAM ONCE A DAY
     Route: 065
  23. ISENTRESS [Suspect]
     Active Substance: RALTEGRAVIR POTASSIUM
     Indication: Product used for unknown indication
     Dosage: 400 MG, BID
     Route: 065
  24. ISENTRESS [Suspect]
     Active Substance: RALTEGRAVIR POTASSIUM
     Dosage: 400 MILLIGRAM, QD
     Route: 048
  25. ISENTRESS [Suspect]
     Active Substance: RALTEGRAVIR POTASSIUM
     Dosage: 400 MILLIGRAM, QD
     Route: 048
  26. ISENTRESS [Suspect]
     Active Substance: RALTEGRAVIR POTASSIUM
     Dosage: 1 DF, 2/DAY (ONCE A DAY, BID)
     Route: 065
  27. ISENTRESS [Suspect]
     Active Substance: RALTEGRAVIR POTASSIUM
     Dosage: UNK, ONCE A DAY, FORMULATION TABLET
     Route: 065
  28. ISENTRESS [Suspect]
     Active Substance: RALTEGRAVIR POTASSIUM
     Dosage: 400 MILLIGRAM, QD
     Route: 048
  29. ISENTRESS [Suspect]
     Active Substance: RALTEGRAVIR POTASSIUM
     Dosage: 400 MILLIGRAM, QD
     Route: 048
  30. ISENTRESS [Suspect]
     Active Substance: RALTEGRAVIR POTASSIUM
     Dosage: 400 MILLIGRAM, ONCE A DAY, FORMULATION TABLET FORM
     Route: 048
  31. LAMIVUDINE [Suspect]
     Active Substance: LAMIVUDINE
     Indication: Product used for unknown indication
     Dosage: 150 MILLIGRAM, BID
     Route: 065
  32. LAMIVUDINE [Suspect]
     Active Substance: LAMIVUDINE
     Dosage: 150 MILLIGRAM, BID
     Route: 065
  33. LAMIVUDINE [Suspect]
     Active Substance: LAMIVUDINE
     Dosage: 150 MG, QD
     Route: 065
  34. LAMIVUDINE [Suspect]
     Active Substance: LAMIVUDINE
     Dosage: 150 MILLIGRAM, BID
     Route: 065
  35. LAMIVUDINE [Suspect]
     Active Substance: LAMIVUDINE
     Dosage: 150 MILLIGRAM, BID
     Route: 065
  36. PREZISTA [Suspect]
     Active Substance: DARUNAVIR ETHANOLATE
     Indication: Product used for unknown indication
     Dosage: 600 MG, BID
     Route: 065
  37. PREZISTA [Suspect]
     Active Substance: DARUNAVIR ETHANOLATE
     Dosage: 600 MILLIGRAM, QD
     Route: 065
  38. PREZISTA [Suspect]
     Active Substance: DARUNAVIR ETHANOLATE
     Dosage: 600 MILLIGRAM, QD
     Route: 065
  39. RALTEGRAVIR POTASSIUM [Suspect]
     Active Substance: RALTEGRAVIR POTASSIUM
     Indication: Product used for unknown indication
     Dosage: UNK, 1/DAY
     Route: 065
  40. RALTEGRAVIR POTASSIUM [Suspect]
     Active Substance: RALTEGRAVIR POTASSIUM
     Dosage: STRENGTH 400 MG, BID
     Route: 048
  41. RAMIPRIL [Suspect]
     Active Substance: RAMIPRIL
     Indication: Product used for unknown indication
     Route: 065
  42. RAMIPRIL [Suspect]
     Active Substance: RAMIPRIL
     Route: 065
  43. RAMIPRIL [Suspect]
     Active Substance: RAMIPRIL
     Route: 065
  44. TENOFOVIR DISOPROXIL [Suspect]
     Active Substance: TENOFOVIR DISOPROXIL
     Indication: Product used for unknown indication
     Dosage: 245 MILLIGRAM, QD
     Route: 065
  45. TENOFOVIR DISOPROXIL [Suspect]
     Active Substance: TENOFOVIR DISOPROXIL
     Dosage: 150 MG, PRN
     Route: 065
  46. TENOFOVIR DISOPROXIL [Suspect]
     Active Substance: TENOFOVIR DISOPROXIL
     Dosage: 245 MILLIGRAM, QD
     Route: 065
  47. VIREAD [Suspect]
     Active Substance: TENOFOVIR DISOPROXIL FUMARATE
     Indication: Product used for unknown indication
     Dosage: 245 MILLIGRAM, QD (245 MG, QD)
     Route: 065
  48. LAMIVUDINE [Suspect]
     Active Substance: LAMIVUDINE
     Indication: Product used for unknown indication
     Dosage: 300 MG, QD (150 MILLIGRAM, BID)
     Route: 065

REACTIONS (3)
  - Death [Fatal]
  - Fall [Fatal]
  - Brain stem stroke [Fatal]

NARRATIVE: CASE EVENT DATE: 20200401
